FAERS Safety Report 18320357 (Version 3)
Quarter: 2020Q4

REPORT INFORMATION
  Report Type: Spontaneous
  Country: DE (occurrence: DE)
  Receive Date: 20200929
  Receipt Date: 20201109
  Transmission Date: 20210113
  Serious: Yes (Other)
  Sender: FDA-Public Use
  Company Number: DE-OCTA-GAM19520DE

PATIENT
  Age: 46 Year
  Sex: Female
  Weight: 48 kg

DRUGS (5)
  1. METOPROLOL. [Concomitant]
     Active Substance: METOPROLOL
     Indication: HYPERTENSION
     Route: 048
  2. VELBIENNE [Concomitant]
     Indication: HORMONE REPLACEMENT THERAPY
     Dosage: ONCE DAILY
     Route: 048
  3. TILIDINE [Concomitant]
     Active Substance: TILIDINE
     Indication: PAIN
     Dosage: AS NECESSARY
     Route: 048
  4. DEKRISTOL [Concomitant]
     Active Substance: CHOLECALCIFEROL
     Indication: OSTEOPOROSIS
     Route: 048
  5. OCTAGAM IMMUNE GLOBULIN (HUMAN) [Suspect]
     Active Substance: HUMAN IMMUNOGLOBULIN G
     Indication: SELECTIVE IGG SUBCLASS DEFICIENCY
     Route: 042
     Dates: start: 2008

REACTIONS (10)
  - Parvovirus B19 test positive [Unknown]
  - Suspected transmission of an infectious agent via product [Unknown]
  - Body temperature increased [Not Recovered/Not Resolved]
  - Arthralgia [Not Recovered/Not Resolved]
  - Dyspnoea [Not Recovered/Not Resolved]
  - Fatigue [Not Recovered/Not Resolved]
  - Mental fatigue [Not Recovered/Not Resolved]
  - Borrelia test positive [Unknown]
  - Hyperhidrosis [Not Recovered/Not Resolved]
  - Misleading laboratory test result [Unknown]

NARRATIVE: CASE EVENT DATE: 2019
